FAERS Safety Report 5480383-4 (Version None)
Quarter: 2007Q4

REPORT INFORMATION
  Report Type: 
  Country: None (occurrence: None)
  Receive Date: 20071004
  Receipt Date: 20071004
  Transmission Date: 20080405
  Serious: Yes (Other)
  Sender: FDA-Public Use
  Company Number: None

PATIENT
  Age: 56 Year
  Sex: Male
  Weight: 90.7194 kg

DRUGS (1)
  1. CHANTIX [Suspect]
     Indication: SMOKING CESSATION THERAPY
     Dosage: ONCE A DAY PROGRESSIVE TO TWIC  ONCE AND TWICE DAI   ENDOTRACHEA
     Route: 007
     Dates: start: 20070815, end: 20070915

REACTIONS (6)
  - ABNORMAL DREAMS [None]
  - ANGER [None]
  - CONFUSIONAL STATE [None]
  - NIGHTMARE [None]
  - SUICIDAL IDEATION [None]
  - THINKING ABNORMAL [None]
